FAERS Safety Report 4699590-3 (Version None)
Quarter: 2005Q2

REPORT INFORMATION
  Report Type: 
  Country: None (occurrence: None)
  Receive Date: 20050204
  Receipt Date: 20050204
  Transmission Date: 20051028
  Serious: Yes (Other)
  Sender: FDA-Public Use
  Company Number: None

PATIENT
  Age: 49 Year
  Sex: Female
  Weight: 45.3597 kg

DRUGS (7)
  1. GABAPENTIN [Suspect]
     Indication: BIPOLAR DISORDER
     Dosage: 400MG  QID
     Dates: start: 20041001, end: 20041012
  2. GABAPENTIN [Suspect]
     Indication: NEUROPATHY
     Dosage: 400MG  QID
     Dates: start: 20041001, end: 20041012
  3. ESKALITH [Concomitant]
  4. PAXIL [Concomitant]
  5. TOPAMAX [Concomitant]
  6. PREMARIN [Concomitant]
  7. CYCLOBENZAPRINE HCL [Concomitant]

REACTIONS (3)
  - HYPOAESTHESIA [None]
  - PAIN IN EXTREMITY [None]
  - PARAESTHESIA [None]
